FAERS Safety Report 6557343-5 (Version None)
Quarter: 2010Q1

REPORT INFORMATION
  Report Type: 
  Country: None (occurrence: None)
  Receive Date: 20100128
  Receipt Date: 20100128
  Transmission Date: 20100710
  Serious: Yes (Disabling)
  Sender: FDA-Public Use
  Company Number: None

PATIENT
  Age: 63 Year
  Sex: Male
  Weight: 88.6 kg

DRUGS (1)
  1. ZICAM NASAL GEL [Suspect]

REACTIONS (3)
  - BURNING SENSATION MUCOSAL [None]
  - DYSGEUSIA [None]
  - PAROSMIA [None]
